FAERS Safety Report 9112433 (Version 1)
Quarter: 2013Q1

REPORT INFORMATION
  Report Type: Spontaneous
  Country: CH (occurrence: CH)
  Receive Date: 20130218
  Receipt Date: 20130218
  Transmission Date: 20140127
  Serious: Yes (Hospitalization, Other)
  Sender: FDA-Public Use
  Company Number: CH-ELI_LILLY_AND_COMPANY-CH201302003926

PATIENT
  Age: 75 None
  Sex: Male

DRUGS (7)
  1. ZYPREXA [Suspect]
     Indication: PSYCHOTIC DISORDER
     Dosage: 5 MG, QD
     Route: 048
     Dates: start: 201011, end: 20130124
  2. CYMBALTA [Suspect]
     Indication: MAJOR DEPRESSION
     Dosage: 60 MG, QD
     Dates: start: 201011
  3. OXAZEPAM [Concomitant]
     Dosage: 7.5 MG, QD
  4. FONDAPARINUX [Concomitant]
     Dosage: UNK
  5. PICOSULFATE [Concomitant]
     Dosage: UNK
  6. IPRATROPIUM BROMIDE W/SALBUTAMOL [Concomitant]
     Dosage: UNK
  7. SORBITOL [Concomitant]

REACTIONS (7)
  - Ischaemic stroke [Unknown]
  - Gait disturbance [Recovering/Resolving]
  - Fall [Recovered/Resolved]
  - Muscular weakness [Recovering/Resolving]
  - Depressed mood [Unknown]
  - Anhedonia [Unknown]
  - Apathy [Unknown]
